FAERS Safety Report 4489235-X (Version None)
Quarter: 2004Q4

REPORT INFORMATION
  Report Type: 
  Country: None (occurrence: None)
  Receive Date: 20041029
  Receipt Date: 20040806
  Transmission Date: 20050328
  Serious: Yes (Disabling)
  Sender: FDA-Public Use
  Company Number: US-MERCK-0408USA00621

PATIENT
  Age: 79 Year
  Sex: Male

DRUGS (3)
  1. PROSCAR [Suspect]
     Indication: BENIGN PROSTATIC HYPERPLASIA
     Route: 048
     Dates: start: 20040525, end: 20040729
  2. ATENOLOL [Concomitant]
     Route: 065
  3. ZOCOR [Concomitant]
     Route: 048

REACTIONS (3)
  - BLINDNESS [None]
  - VISION BLURRED [None]
  - VISUAL DISTURBANCE [None]
